FAERS Safety Report 6331455-3 (Version None)
Quarter: 2009Q3

REPORT INFORMATION
  Report Type: 
  Country: None (occurrence: None)
  Receive Date: 20090827
  Receipt Date: 20090818
  Transmission Date: 20100115
  Serious: Yes (Death)
  Sender: FDA-Public Use
  Company Number: AU-GILEAD-2009-0023816

PATIENT
  Age: 6 Month
  Sex: Female

DRUGS (2)
  1. VISTIDE [Suspect]
     Route: 048
  2. VISTIDE [Suspect]

REACTIONS (2)
  - PULMONARY OEDEMA [None]
  - RESPIRATORY FAILURE [None]
